FAERS Safety Report 26080458 (Version 1)
Quarter: 2025Q4

REPORT INFORMATION
  Report Type: Report from Study
  Country: US (occurrence: US)
  Receive Date: 20251124
  Receipt Date: 20251124
  Transmission Date: 20260118
  Serious: Yes (Other)
  Sender: ALEXION PHARMACEUTICALS
  Company Number: US-ASTRAZENECA-202511NAM012120US

PATIENT
  Age: 68 Year
  Sex: Female

DRUGS (1)
  1. STRENSIQ [Suspect]
     Active Substance: ASFOTASE ALFA
     Indication: Phosphorus metabolism disorder
     Dosage: 1 MILLIGRAM/KILOGRAM, SIX TIMES/WEEK
     Route: 065

REACTIONS (21)
  - Meniere^s disease [Unknown]
  - Deafness [Unknown]
  - Cataract [Unknown]
  - Upper limb fracture [Unknown]
  - Auditory nerve disorder [Unknown]
  - Balance disorder [Unknown]
  - Discomfort [Unknown]
  - Musculoskeletal stiffness [Unknown]
  - External ear pain [Unknown]
  - Palpitations [Unknown]
  - Abdominal pain [Unknown]
  - Irritable bowel syndrome [Unknown]
  - Back pain [Unknown]
  - Arthralgia [Unknown]
  - Myalgia [Unknown]
  - Blood sodium decreased [Unknown]
  - Injection site pain [Unknown]
  - Humerus fracture [Unknown]
  - Hypertension [Unknown]
  - Spinal stenosis [Unknown]
  - Blood parathyroid hormone increased [Unknown]

NARRATIVE: CASE EVENT DATE: 20221005
